FAERS Safety Report 5545298-1 (Version None)
Quarter: 2007Q4

REPORT INFORMATION
  Report Type: 
  Country: None (occurrence: None)
  Receive Date: 20071211
  Receipt Date: 20071203
  Transmission Date: 20080405
  Serious: Yes (Hospitalization, Disabling)
  Sender: FDA-Public Use
  Company Number: PHBS2007NO20564

PATIENT
  Age: 71 Year
  Sex: Male

DRUGS (5)
  1. DOLCONTIN [Concomitant]
     Indication: METASTATIC PAIN
     Dosage: 20 MG/DAY
     Route: 048
  2. PARACETAMOL [Concomitant]
     Indication: METASTATIC PAIN
     Dosage: 1 G, TID
     Route: 048
  3. PREDNISOLONE [Suspect]
     Indication: PROSTATE CANCER METASTATIC
     Dosage: 5MG
     Route: 048
  4. ALBYL-E [Concomitant]
     Indication: THROMBOSIS PROPHYLAXIS
     Dosage: 75 MG/DAY
     Route: 048
  5. ZOMETA [Suspect]
     Indication: METASTASES TO BONE
     Dosage: 4 MG EVERY 4 WEEKS
     Route: 042
     Dates: start: 20040101, end: 20070901

REACTIONS (1)
  - OSTEONECROSIS [None]
